FAERS Safety Report 7217163-5 (Version None)
Quarter: 2011Q1

REPORT INFORMATION
  Report Type: 
  Country: None (occurrence: None)
  Receive Date: 20110110
  Receipt Date: 20101228
  Transmission Date: 20110831
  Serious: Yes (Life-Threatening, Hospitalization, Other)
  Sender: FDA-Public Use
  Company Number: JP-CELGENEUS-087-21880-10112702

PATIENT
  Sex: Female
  Weight: 40.2 kg

DRUGS (12)
  1. DEXAMETHASONE [Concomitant]
     Route: 051
     Dates: start: 20101019, end: 20101019
  2. PREDONINE [Concomitant]
     Indication: MULTIPLE MYELOMA
     Route: 048
     Dates: start: 20101012, end: 20101108
  3. PROTECADIN [Concomitant]
     Indication: PROPHYLAXIS
     Route: 048
     Dates: start: 20101012, end: 20101108
  4. REVLIMID [Suspect]
     Indication: MULTIPLE MYELOMA
     Route: 048
     Dates: start: 20101012, end: 20101206
  5. CALBLOCK [Concomitant]
     Indication: HYPERTENSION
     Route: 048
     Dates: start: 20101012, end: 20101108
  6. ASPIRIN [Concomitant]
     Indication: PROPHYLAXIS
     Route: 048
     Dates: start: 20101016, end: 20101108
  7. FLUCONAZOLE [Concomitant]
     Indication: PROPHYLAXIS
     Route: 048
     Dates: start: 20101012, end: 20101108
  8. DEXAMETHASONE [Concomitant]
     Indication: MULTIPLE MYELOMA
     Route: 051
     Dates: start: 20101012, end: 20101015
  9. DIOVAN [Concomitant]
     Indication: HYPERTENSION
     Route: 048
     Dates: start: 20101012, end: 20101108
  10. MEXITIL [Concomitant]
     Indication: ARRHYTHMIA
     Route: 048
     Dates: start: 20101012, end: 20101108
  11. DEXAMETHASONE [Concomitant]
     Route: 051
     Dates: start: 20101026, end: 20101026
  12. FERROUS CITRATE [Concomitant]
     Route: 048
     Dates: start: 20101012, end: 20101108

REACTIONS (4)
  - HAEMORRHAGE [None]
  - THROMBOCYTOPENIA [None]
  - INFECTION [None]
  - NEUTROPHIL COUNT DECREASED [None]
